FAERS Safety Report 8179547-0 (Version None)
Quarter: 2012Q1

REPORT INFORMATION
  Report Type: 
  Country: None (occurrence: None)
  Receive Date: 20120302
  Receipt Date: 20120229
  Transmission Date: 20120608
  Serious: No
  Sender: FDA-Public Use
  Company Number: US-PFIZER INC-2012054714

PATIENT
  Sex: Female
  Weight: 98.866 kg

DRUGS (4)
  1. CHANTIX [Suspect]
     Dosage: 1 MG, 2X/DAY
     Route: 048
     Dates: start: 20120101
  2. VICODIN [Concomitant]
     Indication: PAIN
     Dosage: UNK
  3. CHANTIX [Suspect]
     Indication: SMOKING CESSATION THERAPY
     Dosage: 0.5 MG, 1X/DAY
     Route: 048
     Dates: start: 20120114, end: 20120101
  4. MOTRIN [Concomitant]
     Indication: PAIN
     Dosage: UNK

REACTIONS (3)
  - ABNORMAL SLEEP-RELATED EVENT [None]
  - NAUSEA [None]
  - ABNORMAL DREAMS [None]
